FAERS Safety Report 21017623 (Version 1)
Quarter: 2022Q2

REPORT INFORMATION
  Report Type: Report from Study
  Country: US (occurrence: US)
  Receive Date: 20220628
  Receipt Date: 20220628
  Transmission Date: 20220721
  Serious: Yes (Hospitalization)
  Sender: FDA-Public Use
  Company Number: US-JNJFOC-20220632207

PATIENT
  Sex: Male

DRUGS (2)
  1. EPOPROSTENOL SODIUM [Suspect]
     Active Substance: EPOPROSTENOL SODIUM
     Indication: Pulmonary arterial hypertension
     Route: 042
     Dates: start: 201907
  2. EPOPROSTENOL SODIUM [Suspect]
     Active Substance: EPOPROSTENOL SODIUM
     Dosage: 50 NG/KG/MIN
     Route: 042
     Dates: start: 20220408

REACTIONS (3)
  - Drug delivery system malfunction [Unknown]
  - Device occlusion [Unknown]
  - Product administration interrupted [Unknown]
